FAERS Safety Report 16028543 (Version 3)
Quarter: 2019Q2

REPORT INFORMATION
  Report Type: Report from Study
  Country: DE (occurrence: DE)
  Receive Date: 20190304
  Receipt Date: 20190508
  Transmission Date: 20190711
  Serious: Yes (Other)
  Sender: FDA-Public Use
  Company Number: DE-ROCHE-2271569

PATIENT
  Age: 45 Year
  Sex: Female

DRUGS (8)
  1. OCREVUS [Suspect]
     Active Substance: OCRELIZUMAB
     Indication: RELAPSING-REMITTING MULTIPLE SCLEROSIS
     Route: 042
     Dates: start: 20180730
  2. ESOMEPRAZOLE. [Concomitant]
     Active Substance: ESOMEPRAZOLE MAGNESIUM
  3. IKERVIS [Concomitant]
     Active Substance: CYCLOSPORINE
     Route: 065
  4. OXYBUTYNIN. [Concomitant]
     Active Substance: OXYBUTYNIN CHLORIDE
     Dosage: 1-0-1
     Route: 065
  5. FOSTER [BECLOMETASONE DIPROPIONATE;FORMOTEROL FUMARATE] [Concomitant]
     Dosage: 100/6, 1-0-0, 100 UG BECLOMETHASONE DIPROPIONATE AND 6 UG FORMOTEROL FUMARATE DIHYDRATE
     Route: 065
  6. OCREVUS [Suspect]
     Active Substance: OCRELIZUMAB
     Route: 042
     Dates: start: 20190213
  7. RIVOTRIL [Concomitant]
     Active Substance: CLONAZEPAM
     Dosage: EVENING
     Route: 065
  8. DEKRISTOL [Concomitant]
     Active Substance: CHOLECALCIFEROL
     Route: 065

REACTIONS (6)
  - Pulpitis dental [Not Recovered/Not Resolved]
  - Fatigue [Recovered/Resolved]
  - Uveitis [Recovered/Resolved]
  - Fall [Unknown]
  - Skeletal injury [Not Recovered/Not Resolved]
  - Ligament sprain [Not Recovered/Not Resolved]

NARRATIVE: CASE EVENT DATE: 20190101
